FAERS Safety Report 7793239-9 (Version None)
Quarter: 2011Q3

REPORT INFORMATION
  Report Type: 
  Country: None (occurrence: None)
  Receive Date: 20110929
  Receipt Date: 20110916
  Transmission Date: 20111222
  Serious: Yes (Hospitalization, Other)
  Sender: FDA-Public Use
  Company Number: 1000024108

PATIENT
  Age: 83 Year
  Sex: Female

DRUGS (11)
  1. RASILEZ (ALISKIREN FUMARATE) (ALISKIREN FUMARATE) [Concomitant]
  2. STAYBLA (IMIDAFENACIN) (IMIDAFENACIN) [Concomitant]
  3. THEODUR (THEOPHYLLINE) (THEOPHYLLINE) [Concomitant]
  4. MUCOSOLVAN (AMBROXOL HYDROCHLORIDE) (AMBROXOL HYDROCHLORIDE) [Concomitant]
  5. PURSENNID (SENNOSIDE) (SENNOSIDE) [Concomitant]
  6. MEMANTINE [Suspect]
     Indication: DEMENTIA ALZHEIMER'S TYPE
     Dosage: SEE IMAGE
     Route: 048
     Dates: start: 20110709, end: 20110715
  7. MEMANTINE [Suspect]
     Indication: DEMENTIA ALZHEIMER'S TYPE
     Dosage: SEE IMAGE
     Route: 048
     Dates: start: 20110716, end: 20110722
  8. MEMANTINE [Suspect]
     Indication: DEMENTIA ALZHEIMER'S TYPE
     Dosage: SEE IMAGE
     Route: 048
     Dates: start: 20110702, end: 20110708
  9. MEMANTINE [Suspect]
     Indication: DEMENTIA ALZHEIMER'S TYPE
     Dosage: SEE IMAGE
     Route: 048
     Dates: start: 20110723
  10. SIGMART (NICORANDIL) (NICORANDIL) [Concomitant]
  11. SERMION (NICERGOLINE) (NICERGOLINE) [Concomitant]

REACTIONS (9)
  - OLIGURIA [None]
  - BLOOD CHOLESTEROL INCREASED [None]
  - CARDIAC FAILURE CONGESTIVE [None]
  - BLOOD CREATININE INCREASED [None]
  - BLOOD LACTATE DEHYDROGENASE INCREASED [None]
  - OEDEMA PERIPHERAL [None]
  - PULMONARY CONGESTION [None]
  - BLOOD SODIUM DECREASED [None]
  - BLOOD UREA INCREASED [None]
